FAERS Safety Report 5625932-8 (Version None)
Quarter: 2008Q1

REPORT INFORMATION
  Report Type: 
  Country: None (occurrence: None)
  Receive Date: 20080212
  Receipt Date: 20080212
  Transmission Date: 20080703
  Serious: Yes (Life-Threatening, Hospitalization, Disabling, Other)
  Sender: FDA-Public Use
  Company Number: None

PATIENT
  Sex: Male
  Weight: 113.3993 kg

DRUGS (2)
  1. PROVENTIL-HFA [Suspect]
     Indication: ASTHMA
     Dosage: I BELEIVE 17G  1 PUFF  OTHER
     Route: 050
     Dates: start: 20080206, end: 20080206
  2. PROVENTIL-HFA [Suspect]
     Indication: LOWER RESPIRATORY TRACT INFECTION
     Dosage: I BELEIVE 17G  1 PUFF  OTHER
     Route: 050
     Dates: start: 20080206, end: 20080206

REACTIONS (2)
  - DRUG INEFFECTIVE [None]
  - PHARMACEUTICAL PRODUCT COMPLAINT [None]
